FAERS Safety Report 14484200 (Version 1)
Quarter: 2018Q1

REPORT INFORMATION
  Report Type: Spontaneous
  Country: CZ (occurrence: CZ)
  Receive Date: 20180205
  Receipt Date: 20180205
  Transmission Date: 20180509
  Serious: Yes (Death, Life-Threatening)
  Sender: FDA-Public Use
  Company Number: CZ-B.I. PHARMACEUTICALS,INC./RIDGEFIELD-2018-BI-005747

PATIENT
  Age: 75 Year
  Sex: Male

DRUGS (2)
  1. PRADAXA [Suspect]
     Active Substance: DABIGATRAN ETEXILATE MESYLATE
     Indication: ATRIAL FIBRILLATION
  2. PRADAXA [Suspect]
     Active Substance: DABIGATRAN ETEXILATE MESYLATE
     Indication: CEREBROVASCULAR ACCIDENT PROPHYLAXIS
     Route: 048

REACTIONS (8)
  - Dehydration [Fatal]
  - Pulmonary haemorrhage [Fatal]
  - General physical health deterioration [Fatal]
  - Epistaxis [Fatal]
  - Haematoma [Fatal]
  - Intestinal haemorrhage [Fatal]
  - Renal failure [Fatal]
  - Haematuria [Fatal]

NARRATIVE: CASE EVENT DATE: 20180118
